FAERS Safety Report 6039711-3 (Version None)
Quarter: 2009Q1

REPORT INFORMATION
  Report Type: 
  Country: None (occurrence: None)
  Receive Date: 20090116
  Receipt Date: 20090109
  Transmission Date: 20090719
  Serious: Yes (Life-Threatening)
  Sender: FDA-Public Use
  Company Number: PHHY2008JP29504

PATIENT
  Sex: Female
  Weight: 61 kg

DRUGS (5)
  1. DIOVAN [Suspect]
     Indication: HYPERTENSION
     Dosage: 80 MG, QD
     Route: 048
     Dates: start: 20071110
  2. AMLODIPINE [Concomitant]
     Indication: HYPERTENSION
     Dosage: 2.5 MG
     Route: 048
     Dates: start: 20071110, end: 20080604
  3. FLUITRAN [Concomitant]
     Indication: HYPERTENSION
     Dosage: 2 MG
     Route: 048
     Dates: start: 20080125, end: 20080604
  4. ZANTAC [Concomitant]
     Dosage: 300 MG
     Route: 048
     Dates: start: 20080214
  5. MAALOX [Concomitant]
     Dosage: 2.4 G
     Route: 048
     Dates: start: 20080214

REACTIONS (1)
  - GASTRIC CANCER [None]
